FAERS Safety Report 12618025 (Version 1)
Quarter: 2016Q3

REPORT INFORMATION
  Report Type: Spontaneous
  Country: US (occurrence: None)
  Receive Date: 20160802
  Receipt Date: 20160802
  Transmission Date: 20161109
  Serious: No
  Sender: FDA-Public Use
  Company Number: None

PATIENT

DRUGS (2)
  1. OXYMETAZOLINE NASAL SPRAY [Suspect]
     Active Substance: OXYMETAZOLINE
  2. LIDOCAINE. [Suspect]
     Active Substance: LIDOCAINE
     Dosage: DOSAGE FORM SOLUTION, TYPE BOTTLE
     Route: 048

REACTIONS (2)
  - Product container seal issue [None]
  - Product packaging confusion [None]
